FAERS Safety Report 6835740-8 (Version None)
Quarter: 2010Q3

REPORT INFORMATION
  Report Type: 
  Country: None (occurrence: None)
  Receive Date: 20100712
  Receipt Date: 20100712
  Transmission Date: 20110219
  Serious: Yes (Hospitalization, Other)
  Sender: FDA-Public Use
  Company Number: None

PATIENT
  Age: 5 Year
  Sex: Female
  Weight: 24.4942 kg

DRUGS (1)
  1. DESMOPRESSIN ACETATE [Suspect]
     Indication: ENURESIS
     Dosage: 1 TABLET 1 TABLET PO
     Route: 048
     Dates: start: 20100629, end: 20100707

REACTIONS (2)
  - PYREXIA [None]
  - RASH GENERALISED [None]
